FAERS Safety Report 23580737 (Version 4)
Quarter: 2025Q3

REPORT INFORMATION
  Report Type: Report from Study
  Country: BR (occurrence: BR)
  Receive Date: 20240229
  Receipt Date: 20250711
  Transmission Date: 20251020
  Serious: Yes (Other)
  Sender: JOHNSON AND JOHNSON
  Company Number: BR-JNJFOC-20240169544

PATIENT
  Age: 56 Year
  Sex: Female
  Weight: 76 kg

DRUGS (9)
  1. SIMPONI [Suspect]
     Active Substance: GOLIMUMAB
     Indication: Rheumatoid arthritis
     Route: 058
     Dates: start: 20231205
  2. SIMPONI [Suspect]
     Active Substance: GOLIMUMAB
  3. IMENSE [Concomitant]
     Indication: Antidepressant therapy
     Dosage: 100G / 1CP (NIGHT)
  4. DIPYRONE [Concomitant]
     Active Substance: DIPYRONE
     Indication: Pain
  5. PREDNISONE [Concomitant]
     Active Substance: PREDNISONE
     Indication: Product used for unknown indication
  6. INDOSSO [Concomitant]
     Indication: Product used for unknown indication
  7. VITAMIN D NOS [Concomitant]
     Active Substance: CHOLECALCIFEROL\ERGOCALCIFEROL
     Indication: Product used for unknown indication
  8. LOSARTAN [Concomitant]
     Active Substance: LOSARTAN
     Indication: Product used for unknown indication
     Dosage: 50MG / 2 (MORNING-EVENING)
  9. ATENOLOL [Concomitant]
     Active Substance: ATENOLOL
     Indication: Product used for unknown indication

REACTIONS (17)
  - Systemic lupus erythematosus [Unknown]
  - Rheumatoid arthritis [Unknown]
  - Influenza [Unknown]
  - Burning sensation [Unknown]
  - Urticaria [Unknown]
  - Weight increased [Unknown]
  - Localised infection [Not Recovered/Not Resolved]
  - Food allergy [Unknown]
  - Cold sweat [Unknown]
  - Facial pain [Unknown]
  - Headache [Unknown]
  - Decreased immune responsiveness [Unknown]
  - Hepatic steatosis [Unknown]
  - Formication [Unknown]
  - Depression [Unknown]
  - Swelling [Unknown]
  - Drug ineffective [Unknown]

NARRATIVE: CASE EVENT DATE: 20240101
